FAERS Safety Report 14868312 (Version 2)
Quarter: 2018Q2

REPORT INFORMATION
  Report Type: Report from Study
  Country: US (occurrence: US)
  Receive Date: 20180509
  Receipt Date: 20180619
  Transmission Date: 20180711
  Serious: Yes (Other)
  Sender: FDA-Public Use
  Company Number: PHEH2018US017048

PATIENT
  Sex: Male

DRUGS (4)
  1. TAFINLAR [Suspect]
     Active Substance: DABRAFENIB MESYLATE
     Indication: METASTATIC MALIGNANT MELANOMA
     Route: 065
  2. MEKINIST [Suspect]
     Active Substance: TRAMETINIB DIMETHYL SULFOXIDE
     Indication: METASTATIC MALIGNANT MELANOMA
     Route: 065
  3. LYRICA [Concomitant]
     Active Substance: PREGABALIN
     Indication: PRODUCT USED FOR UNKNOWN INDICATION
     Route: 065
  4. LEVOTHYROXINE. [Concomitant]
     Active Substance: LEVOTHYROXINE
     Indication: METASTATIC MALIGNANT MELANOMA
     Route: 065

REACTIONS (7)
  - Metastases to central nervous system [Unknown]
  - Metastatic malignant melanoma [Unknown]
  - Amnesia [Unknown]
  - Metastases to spine [Unknown]
  - Limb discomfort [Unknown]
  - Anxiety [Unknown]
  - Malignant neoplasm progression [Unknown]
